FAERS Safety Report 9506070 (Version 1)
Quarter: 2013Q1

REPORT INFORMATION
  Report Type: Spontaneous
  Country: US (occurrence: None)
  Receive Date: 20130305
  Receipt Date: 20130305
  Transmission Date: 20140127
  Serious: No
  Sender: FDA-Public Use
  Company Number: 163-21880-12022008

PATIENT
  Age: 79 Year
  Sex: Male

DRUGS (6)
  1. REVLIMID (LENALIDOMIDE) (CAPSULES) [Suspect]
     Indication: MYELODYSPLASTIC SYNDROME
     Dosage: 5MG, 21 IN 28 D, PO
     Route: 048
     Dates: start: 20100622
  2. CITALOPRAM (CITALOPRAM) [Concomitant]
  3. ASA (ACETYLSALICYLIC ACID) [Concomitant]
  4. IMODIUM AD (LOPERAMIDE HYDROCHLORIDE) [Concomitant]
  5. FLOMAX (TAMSULOSIN HYDROCHLORIDE) [Concomitant]
  6. METOPROLOL (METOPROLOL) [Concomitant]

REACTIONS (3)
  - Haemoglobin decreased [None]
  - Fatigue [None]
  - White blood cell count decreased [None]
